FAERS Safety Report 7628128-3 (Version None)
Quarter: 2011Q3

REPORT INFORMATION
  Report Type: 
  Country: None (occurrence: None)
  Receive Date: 20110720
  Receipt Date: 20110720
  Transmission Date: 20111222
  Serious: No
  Sender: FDA-Public Use
  Company Number: None

PATIENT
  Sex: Male

DRUGS (2)
  1. PEG-INTRON [Suspect]
     Dosage: 150MCG QW SQ
     Route: 058
     Dates: start: 20110301, end: 20110707
  2. RIBASPHERE [Suspect]
     Dosage: 600 MG BID
     Dates: start: 20110301, end: 20110707

REACTIONS (2)
  - WEIGHT DECREASED [None]
  - INFLUENZA LIKE ILLNESS [None]
